FAERS Safety Report 17596459 (Version 1)
Quarter: 2020Q1

REPORT INFORMATION
  Report Type: Spontaneous
  Country: HR (occurrence: HR)
  Receive Date: 20200330
  Receipt Date: 20200330
  Transmission Date: 20200409
  Serious: Yes (Other)
  Sender: FDA-Public Use
  Company Number: HR-TEVA-2020-HR-1212395

PATIENT
  Sex: Female

DRUGS (3)
  1. FENOFIBRATE. [Suspect]
     Active Substance: FENOFIBRATE
     Dosage: 5 TBL:5 DOSAGEFORM
     Route: 048
     Dates: start: 20191120, end: 20191120
  2. OXAZEPAM. [Suspect]
     Active Substance: OXAZEPAM
     Dosage: 8-10 OXAZEPAMA: 10 DOSAGEFORM
     Route: 048
     Dates: start: 20191120, end: 20191120
  3. SANVAL [Suspect]
     Active Substance: ZOLPIDEM TARTRATE
     Dosage: 8-10 SANVALA
     Route: 048
     Dates: start: 20191120, end: 20191120

REACTIONS (2)
  - Intentional overdose [Unknown]
  - Suicide attempt [Unknown]

NARRATIVE: CASE EVENT DATE: 20191120
